FAERS Safety Report 8609123-4 (Version None)
Quarter: 2012Q3

REPORT INFORMATION
  Report Type: 
  Country: None (occurrence: None)
  Receive Date: 20120808
  Receipt Date: 20120726
  Transmission Date: 20120928
  Serious: Yes (Hospitalization, Other)
  Sender: FDA-Public Use
  Company Number: NSR_00600_2012

PATIENT
  Age: 6 Year
  Sex: Male

DRUGS (3)
  1. METOCLOPRAMIDE [Suspect]
     Indication: NAUSEA
     Dosage: 5 MG (ONE DOSE)
  2. METOCLOPRAMIDE [Suspect]
     Indication: ABDOMINAL PAIN
     Dosage: 5 MG (ONE DOSE)
  3. METOCLOPRAMIDE [Suspect]
     Indication: GASTROENTERITIS
     Dosage: 5 MG (ONE DOSE)

REACTIONS (9)
  - AGITATION [None]
  - BLOOD PRESSURE DECREASED [None]
  - OPISTHOTONUS [None]
  - HEART RATE INCREASED [None]
  - RESTLESSNESS [None]
  - SPEECH DISORDER [None]
  - TRISMUS [None]
  - DYSTONIA [None]
  - RESPIRATORY RATE INCREASED [None]
